FAERS Safety Report 20650674 (Version 3)
Quarter: 2022Q2

REPORT INFORMATION
  Report Type: Spontaneous
  Country: AU (occurrence: AU)
  Receive Date: 20220329
  Receipt Date: 20220419
  Transmission Date: 20220721
  Serious: Yes (Death, Other)
  Sender: FDA-Public Use
  Company Number: AU-BAYER-2022A043165

PATIENT
  Age: 70 Year
  Sex: Female

DRUGS (1)
  1. ADEMPAS [Suspect]
     Active Substance: RIOCIGUAT
     Dosage: 2.5 MG, TID
     Route: 048

REACTIONS (6)
  - Death [Fatal]
  - Metastatic neoplasm [None]
  - Sciatica [None]
  - Palliative care [None]
  - Memory impairment [None]
  - Product dose omission issue [None]

NARRATIVE: CASE EVENT DATE: 20211201
